FAERS Safety Report 10236436 (Version 1)
Quarter: 2014Q1

REPORT INFORMATION
  Report Type: Spontaneous
  Country: US (occurrence: None)
  Receive Date: 20140306
  Receipt Date: 20140306
  Transmission Date: 20141002
  Serious: Yes (Hospitalization, Other)
  Sender: FDA-Public Use
  Company Number: 163-21880-13043481

PATIENT
  Age: 76 Year
  Sex: Male

DRUGS (1)
  1. REVLIMID (LENALIDOMIDE) [Suspect]
     Indication: PLASMA CELL MYELOMA
     Route: 048
     Dates: start: 201303

REACTIONS (7)
  - Rib fracture [None]
  - Pain [None]
  - Bronchopneumonia [None]
  - Respiratory disorder [None]
  - Thrombosis [None]
  - Local swelling [None]
  - Pain of skin [None]
